FAERS Safety Report 4359485-1 (Version None)
Quarter: 2004Q2

REPORT INFORMATION
  Report Type: 
  Country: None (occurrence: None)
  Receive Date: 20040512
  Receipt Date: 20040426
  Transmission Date: 20050107
  Serious: Yes (Hospitalization, Other)
  Sender: FDA-Public Use
  Company Number: USA040465760

PATIENT
  Age: 78 Year
  Sex: Female
  Weight: 49 kg

DRUGS (6)
  1. FORTEO [Suspect]
     Indication: OSTEOPOROSIS
     Dosage: 20 UG/1 DAY
     Dates: start: 20040201
  2. FOSAMAX [Concomitant]
  3. VERAPAMIL [Concomitant]
  4. NITROGLYCERIN [Concomitant]
  5. CELEBREX [Concomitant]
  6. ZOCOR [Concomitant]

REACTIONS (4)
  - BRONCHITIS [None]
  - DYSPNOEA [None]
  - LUNG INFECTION [None]
  - PHARMACEUTICAL PRODUCT COMPLAINT [None]
